FAERS Safety Report 9028766 (Version 2)
Quarter: 2013Q1

REPORT INFORMATION
  Report Type: Spontaneous
  Country: CA (occurrence: CA)
  Receive Date: 20130124
  Receipt Date: 20130228
  Transmission Date: 20140127
  Serious: Yes (Death, Other)
  Sender: FDA-Public Use
  Company Number: CA-SANOFI-AVENTIS-2013SA003700

PATIENT
  Age: 46 Year
  Sex: Female
  Weight: 61 kg

DRUGS (3)
  1. TAXOTERE [Suspect]
     Indication: BREAST CANCER
     Route: 042
     Dates: start: 20121213, end: 20121213
  2. CYCLOPHOSPHAMIDE [Concomitant]
     Indication: BREAST CANCER
     Route: 042
     Dates: start: 20121213, end: 20121213
  3. NEUPOGEN [Concomitant]
     Indication: BONE MARROW FAILURE
     Route: 058
     Dates: start: 20121218, end: 20121221

REACTIONS (4)
  - Neutropenic colitis [Fatal]
  - Bacterial sepsis [Unknown]
  - Sepsis [Unknown]
  - Shock [Unknown]
